FAERS Safety Report 15109011 (Version 1)
Quarter: 2018Q3

REPORT INFORMATION
  Report Type: Spontaneous
  Country: US (occurrence: US)
  Receive Date: 20180705
  Receipt Date: 20180705
  Transmission Date: 20181010
  Serious: No
  Sender: FDA-Public Use
  Company Number: PHEH2018US027614

PATIENT
  Sex: Male
  Weight: 153.3 kg

DRUGS (12)
  1. PROPAFENONE. [Concomitant]
     Active Substance: PROPAFENONE
     Indication: ATRIAL FIBRILLATION
     Dosage: 1 DF, TID
     Route: 048
  2. COQ 10 [Concomitant]
     Active Substance: UBIDECARENONE
     Indication: MINERAL SUPPLEMENTATION
     Dosage: 1 DF, QD
     Route: 048
  3. TRAVATAN Z [Suspect]
     Active Substance: TRAVOPROST
     Indication: PRODUCT USED FOR UNKNOWN INDICATION
     Route: 047
  4. CALCIUM [Concomitant]
     Active Substance: CALCIUM
     Indication: MINERAL SUPPLEMENTATION
     Dosage: 1 DF, QD
     Route: 048
  5. LATANOPROST PFIZER [Suspect]
     Active Substance: LATANOPROST
     Indication: GLAUCOMA
     Dosage: 1 GTT, QD (IN THE EVENING)
     Route: 047
  6. BABY ASPIRIN [Concomitant]
     Active Substance: ASPIRIN
     Indication: CARDIAC DISORDER
     Dosage: 1 DF, QD (MORNING)
     Route: 048
  7. BETA SITOSTEROL [Concomitant]
     Indication: PROSTATIC DISORDER
     Dosage: 1 DF, QD
     Route: 048
  8. OCUVITE [Concomitant]
     Active Substance: VITAMINS
     Indication: VITAMIN SUPPLEMENTATION
     Dosage: 1 DF, QD
     Route: 048
  9. MULTIVITAMINS [Concomitant]
     Active Substance: VITAMINS
     Indication: MINERAL SUPPLEMENTATION
     Dosage: 1 DF, QD
     Route: 048
     Dates: start: 1985
  10. ZINC. [Concomitant]
     Active Substance: ZINC
     Indication: MINERAL SUPPLEMENTATION
     Dosage: 1 DF, QD
     Route: 048
     Dates: start: 1985
  11. ASPIRIN. [Concomitant]
     Active Substance: ASPIRIN
     Indication: CARDIAC DISORDER
     Dosage: 1 DF, QD (AT BEDTIME)
     Route: 048
  12. BIOTIN [Concomitant]
     Active Substance: BIOTIN
     Indication: HAIR DISORDER
     Dosage: 1 DF, QD
     Route: 048

REACTIONS (1)
  - Wrong technique in product usage process [Unknown]
